FAERS Safety Report 20903872 (Version 2)
Quarter: 2022Q2

REPORT INFORMATION
  Report Type: Spontaneous
  Country: US (occurrence: US)
  Receive Date: 20220602
  Receipt Date: 20220623
  Transmission Date: 20220720
  Serious: No
  Sender: FDA-Public Use
  Company Number: US-UNITED THERAPEUTICS-UNT-2022-011452

PATIENT
  Age: 63 Year
  Sex: Male

DRUGS (2)
  1. REMODULIN [Suspect]
     Active Substance: TREPROSTINIL
     Indication: Pulmonary arterial hypertension
     Dosage: UNK, CONTINUING
     Route: 058
     Dates: start: 20180706
  2. REMODULIN [Suspect]
     Active Substance: TREPROSTINIL
     Dosage: 0.102 ?G/KG, CONTINUING
     Route: 058

REACTIONS (3)
  - COVID-19 [Unknown]
  - Pain in jaw [Recovered/Resolved]
  - Headache [Recovered/Resolved]

NARRATIVE: CASE EVENT DATE: 20220501
